FAERS Safety Report 4541603-3 (Version None)
Quarter: 2004Q4

REPORT INFORMATION
  Report Type: 
  Country: None (occurrence: None)
  Receive Date: 20041230
  Receipt Date: 20041206
  Transmission Date: 20050328
  Serious: No
  Sender: FDA-Public Use
  Company Number: PHRM2004FR03598

PATIENT
  Age: 52 Year
  Sex: Female
  Weight: 79 kg

DRUGS (5)
  1. TAREG [Suspect]
     Indication: HYPERTENSION
     Dosage: 40 MG, QD
     Route: 048
     Dates: start: 20040720, end: 20041207
  2. PROZAC [Concomitant]
     Indication: DEPRESSION
     Dosage: 20 MG, QD
     Route: 048
     Dates: start: 20040816
  3. LASILIX [Concomitant]
     Indication: HYPERTENSION
     Dosage: 20 MG, QD
     Route: 048
     Dates: start: 20040816
  4. DAFLON 500 [Concomitant]
     Dosage: 500 MG, BID
     Route: 048
     Dates: start: 20040129
  5. SIBELIUM [Concomitant]
     Indication: MIGRAINE
     Dosage: 10 MG, QD
     Route: 048
     Dates: start: 20040701

REACTIONS (3)
  - BRONCHOSPASM [None]
  - COUGH [None]
  - PULMONARY FUNCTION TEST ABNORMAL [None]
